FAERS Safety Report 15949530 (Version 1)
Quarter: 2019Q1

REPORT INFORMATION
  Report Type: Report from Study
  Country: None (occurrence: US)
  Receive Date: 20190211
  Receipt Date: 20190211
  Transmission Date: 20190417
  Serious: Yes (Hospitalization, Other)
  Sender: FDA-Public Use
  Company Number: US-ABBVIE-19K-163-2626199-00

PATIENT
  Age: 59 Year
  Sex: Female
  Weight: 75.36 kg

DRUGS (2)
  1. METOPROLOL. [Concomitant]
     Active Substance: METOPROLOL
     Indication: HYPERTENSION
  2. HUMIRA [Suspect]
     Active Substance: ADALIMUMAB
     Indication: RHEUMATOID ARTHRITIS
     Route: 058
     Dates: start: 2016, end: 20181223

REACTIONS (9)
  - Pollakiuria [Not Recovered/Not Resolved]
  - Fatigue [Recovering/Resolving]
  - Hypersomnia [Not Recovered/Not Resolved]
  - Procedural pain [Recovering/Resolving]
  - Peripheral swelling [Not Recovered/Not Resolved]
  - Renal failure [Not Recovered/Not Resolved]
  - Anxiety [Recovering/Resolving]
  - Hidradenitis [Not Recovered/Not Resolved]
  - Hypotension [Not Recovered/Not Resolved]

NARRATIVE: CASE EVENT DATE: 201812
